FAERS Safety Report 25514458 (Version 1)
Quarter: 2025Q3

REPORT INFORMATION
  Report Type: Spontaneous
  Country: JP (occurrence: JP)
  Receive Date: 20250703
  Receipt Date: 20250703
  Transmission Date: 20251021
  Serious: Yes (Other)
  Sender: PFIZER
  Company Number: JP-PFIZER INC-202500133346

PATIENT
  Age: 4 Year
  Sex: Female

DRUGS (14)
  1. CYTARABINE [Suspect]
     Active Substance: CYTARABINE
     Indication: Acute monocytic leukaemia
  2. CYTARABINE [Suspect]
     Active Substance: CYTARABINE
  3. CYTARABINE [Suspect]
     Active Substance: CYTARABINE
  4. CYTARABINE [Suspect]
     Active Substance: CYTARABINE
  5. CYTARABINE [Suspect]
     Active Substance: CYTARABINE
     Dates: start: 199306
  6. PIRARUBICIN [Suspect]
     Active Substance: PIRARUBICIN
     Dates: start: 199306
  7. METHOTREXATE [Concomitant]
     Active Substance: METHOTREXATE
  8. METHOTREXATE [Concomitant]
     Active Substance: METHOTREXATE
  9. MITOXANTRONE [Concomitant]
     Active Substance: MITOXANTRONE HYDROCHLORIDE
  10. MITOXANTRONE [Concomitant]
     Active Substance: MITOXANTRONE HYDROCHLORIDE
     Dates: start: 199303, end: 199304
  11. ETOPOSIDE [Concomitant]
     Active Substance: ETOPOSIDE
  12. ETOPOSIDE [Concomitant]
     Active Substance: ETOPOSIDE
  13. ETOPOSIDE [Concomitant]
     Active Substance: ETOPOSIDE
     Dates: start: 199306
  14. HYDROCORTISONE [Concomitant]
     Active Substance: HYDROCORTISONE

REACTIONS (1)
  - Hidradenitis [Unknown]
